FAERS Safety Report 15504095 (Version 1)
Quarter: 2018Q4

REPORT INFORMATION
  Report Type: Spontaneous
  Country: US (occurrence: US)
  Receive Date: 20181009
  Receipt Date: 20181009
  Transmission Date: 20190205
  Serious: Yes (Disabling)
  Sender: FDA-Public Use
  Company Number: None

PATIENT
  Age: 7 Year
  Sex: Female

DRUGS (2)
  1. VYVANSE [Suspect]
     Active Substance: LISDEXAMFETAMINE DIMESYLATE
     Indication: ATTENTION DEFICIT/HYPERACTIVITY DISORDER
  2. FERRITIN [Concomitant]
     Active Substance: FERRITIN

REACTIONS (6)
  - Dermatillomania [None]
  - Abnormal behaviour [None]
  - Therapy change [None]
  - Mania [None]
  - Drug effect decreased [None]
  - Scar [None]

NARRATIVE: CASE EVENT DATE: 20100101
